FAERS Safety Report 9535157 (Version 1)
Quarter: 2013Q3

REPORT INFORMATION
  Report Type: Spontaneous
  Country: DE (occurrence: DE)
  Receive Date: 20130918
  Receipt Date: 20130918
  Transmission Date: 20140515
  Serious: Yes (Other)
  Sender: FDA-Public Use
  Company Number: DE-MALLINCKRODT-T201304370

PATIENT
  Age: 40 Year
  Sex: Female

DRUGS (1)
  1. ULTRA TECHNEKOW FM [Suspect]
     Indication: SCAN THYROID GLAND
     Dosage: UNK, SINGLE
     Route: 042
     Dates: start: 20130911, end: 20130911

REACTIONS (4)
  - Oedema mucosal [Recovered/Resolved]
  - Swollen tongue [Recovered/Resolved]
  - Dizziness [Recovered/Resolved]
  - Blood pressure decreased [Recovered/Resolved]
